FAERS Safety Report 17416092 (Version 1)
Quarter: 2020Q1

REPORT INFORMATION
  Report Type: Spontaneous
  Country: US (occurrence: US)
  Receive Date: 20200130
  Receipt Date: 20200130
  Transmission Date: 20200409
  Serious: Yes (Hospitalization)
  Sender: FDA-Public Use
  Company Number: None

PATIENT
  Age: 56 Year
  Sex: Male

DRUGS (1)
  1. MAVYRET [Suspect]
     Active Substance: GLECAPREVIR\PIBRENTASVIR
     Dosage: ?          OTHER DOSE:100/40MG;?
     Route: 048
     Dates: start: 201901

REACTIONS (3)
  - Vomiting projectile [None]
  - Gastric varices haemorrhage [None]
  - Pruritus [None]

NARRATIVE: CASE EVENT DATE: 20200130
